FAERS Safety Report 7054223-6 (Version None)
Quarter: 2010Q4

REPORT INFORMATION
  Report Type: 
  Country: None (occurrence: None)
  Receive Date: 20101020
  Receipt Date: 20101007
  Transmission Date: 20110411
  Serious: Yes (Other)
  Sender: FDA-Public Use
  Company Number: PHHY2010CA55005

PATIENT
  Sex: Female

DRUGS (4)
  1. SANDOSTATIN LAR [Suspect]
     Indication: ACROMEGALY
     Dosage: 20 MG EVERY FOUR WEEKS
     Route: 030
     Dates: start: 20080605
  2. SANDOSTATIN LAR [Suspect]
     Dosage: UNK
     Dates: start: 20080701
  3. SANDOSTATIN LAR [Suspect]
     Dosage: UNK
     Dates: start: 20080801
  4. COUMADIN [Concomitant]
     Dosage: 18 MG, UNK
     Route: 048

REACTIONS (9)
  - DRY THROAT [None]
  - FEAR OF DEATH [None]
  - INSOMNIA [None]
  - INTERNATIONAL NORMALISED RATIO INCREASED [None]
  - LACRIMATION INCREASED [None]
  - MENSTRUAL DISORDER [None]
  - PHLEBITIS [None]
  - PULMONARY EMBOLISM [None]
  - SALIVARY HYPERSECRETION [None]
